FAERS Safety Report 14090006 (Version 2)
Quarter: 2017Q4

REPORT INFORMATION
  Report Type: Spontaneous
  Country: US (occurrence: US)
  Receive Date: 20171015
  Receipt Date: 20171026
  Transmission Date: 20180321
  Serious: No
  Sender: FDA-Public Use
  Company Number: US-TEVA-814770ACC

PATIENT
  Sex: Female

DRUGS (1)
  1. PARAGARD T 380A [Suspect]
     Active Substance: COPPER
     Indication: CONTRACEPTION
     Dates: start: 20070118, end: 20170808

REACTIONS (5)
  - Loss of personal independence in daily activities [Unknown]
  - Device breakage [Recovered/Resolved]
  - Complication associated with device [Recovered/Resolved]
  - Product quality issue [Unknown]
  - Intentional product use issue [Unknown]
